FAERS Safety Report 7879104-7 (Version None)
Quarter: 2011Q4

REPORT INFORMATION
  Report Type: 
  Country: None (occurrence: None)
  Receive Date: 20111101
  Receipt Date: 20111026
  Transmission Date: 20120403
  Serious: Yes (Hospitalization)
  Sender: FDA-Public Use
  Company Number: PHHY2011IT89151

PATIENT
  Sex: Female

DRUGS (7)
  1. VINCRISTINE [Concomitant]
     Dosage: 1.6 G, UNK
     Route: 042
     Dates: start: 20090809, end: 20091207
  2. DOXORUBICIN HCL [Concomitant]
     Dosage: 54 MG, UNK
     Route: 042
     Dates: start: 20090809, end: 20091207
  3. DEXAMETHASONE [Concomitant]
     Dosage: 4 G, UNK
     Route: 042
     Dates: start: 20090809, end: 20091207
  4. DEXAMETHASONE [Concomitant]
     Dosage: 20 MG, UNK
     Route: 042
     Dates: start: 20110718, end: 20110727
  5. CYCLOPHOSPHAMIDE [Concomitant]
     Dosage: 1460 MG, UNK
     Route: 042
     Dates: start: 20110718, end: 20110830
  6. REVLIMID [Concomitant]
     Dosage: 15 MG, UNK
     Route: 048
     Dates: start: 20110718, end: 20110808
  7. ZOMETA [Suspect]
     Indication: MULTIPLE MYELOMA
     Dosage: 4 MG, CYCLIC
     Route: 042
     Dates: start: 20091029, end: 20110823

REACTIONS (1)
  - OSTEONECROSIS OF JAW [None]
